FAERS Safety Report 8765785 (Version 1)
Quarter: 2012Q4

REPORT INFORMATION
  Report Type: 
  Country: US (occurrence: US)
  Receive Date: 20120903
  Receipt Date: 20120903
  Transmission Date: 20130627
  Serious: No
  Sender: FDA-Public Use
  Company Number: US-PFIZER INC-2012215127

PATIENT
  Age: 67 Year

DRUGS (1)
  1. METHOTREXATE SODIUM [Suspect]
     Dosage: UNK
     Dates: start: 20110310, end: 20110612

REACTIONS (1)
  - Drug ineffective [Unknown]
